FAERS Safety Report 8819954 (Version 1)
Quarter: 2012Q4

REPORT INFORMATION
  Report Type: 
  Country: US (occurrence: US)
  Receive Date: 20121001
  Receipt Date: 20121001
  Transmission Date: 20130627
  Serious: No
  Sender: FDA-Public Use
  Company Number: US-PFIZER INC-2012241894

PATIENT
  Age: 50 Year
  Sex: Female
  Weight: 107 kg

DRUGS (9)
  1. LYRICA [Suspect]
     Indication: FIBROMYALGIA
     Dosage: 225 mg, 2x/day
     Route: 048
  2. SAVELLA [Concomitant]
     Indication: RHEUMATOID ARTHRITIS
     Dosage: 50 mg, 2x/day
  3. TOPIRAMATE [Concomitant]
     Dosage: 400 mg, 3x/day
  4. SIMVASTATIN [Concomitant]
     Dosage: 50 mg, daily
  5. ZETIA [Concomitant]
     Dosage: 10 mg, daily
  6. LEXAPRO [Concomitant]
     Dosage: 10 mg, daily
  7. METHOTREXATE [Concomitant]
     Dosage: 20 mg, weekly
  8. FOLIC ACID [Concomitant]
     Dosage: UNK, daily
     Route: 048
  9. ZONISAMIDE [Concomitant]
     Dosage: 100 mg, 2x/day

REACTIONS (4)
  - Withdrawal syndrome [Recovered/Resolved]
  - Hyperhidrosis [Recovered/Resolved]
  - Chills [Recovered/Resolved]
  - Pain [Recovered/Resolved]
